FAERS Safety Report 20351800 (Version 2)
Quarter: 2022Q1

REPORT INFORMATION
  Report Type: Report from Study
  Country: IN (occurrence: IN)
  Receive Date: 20220119
  Receipt Date: 20220223
  Transmission Date: 20220424
  Serious: Yes (Death, Other)
  Sender: FDA-Public Use
  Company Number: IN-NOVARTISPH-NVSC2022IN008242

PATIENT
  Age: 69 Year
  Sex: Male

DRUGS (2)
  1. CERITINIB [Suspect]
     Active Substance: CERITINIB
     Indication: Anaplastic lymphoma kinase gene mutation
     Dosage: 450 MG, QD
     Route: 065
     Dates: start: 20211130, end: 20220102
  2. CERITINIB [Suspect]
     Active Substance: CERITINIB
     Dosage: 150 MG, QD
     Route: 065
     Dates: start: 20220103

REACTIONS (4)
  - Renal failure [Fatal]
  - Haemoptysis [Recovered/Resolved]
  - Asthenia [Recovered/Resolved]
  - Inappropriate schedule of product administration [Unknown]

NARRATIVE: CASE EVENT DATE: 20211228
